FAERS Safety Report 8992726 (Version 1)
Quarter: 2013Q1

REPORT INFORMATION
  Report Type: Report from Study
  Country: US (occurrence: US)
  Receive Date: 20130102
  Receipt Date: 20130102
  Transmission Date: 20140127
  Serious: Yes (Other)
  Sender: FDA-Public Use
  Company Number: US-ROCHE-1152157

PATIENT
  Sex: Male
  Weight: 86.26 kg

DRUGS (2)
  1. CAPECITABINE [Suspect]
     Indication: SKIN CANCER
     Route: 048
     Dates: start: 20120509, end: 201208
  2. MYCOPHENOLATE MOFETIL [Suspect]
     Indication: PRODUCT USED FOR UNKNOWN INDICATION
     Route: 065

REACTIONS (2)
  - Post transplant lymphoproliferative disorder [Unknown]
  - Oesophageal ulcer [Recovered/Resolved]
